FAERS Safety Report 9122059 (Version 2)
Quarter: 2013Q1

REPORT INFORMATION
  Report Type: Spontaneous
  Country: US (occurrence: US)
  Receive Date: 20130114
  Receipt Date: 20130118
  Transmission Date: 20140127
  Serious: Yes (Other)
  Sender: FDA-Public Use
  Company Number: US-RB-048387-13

PATIENT
  Age: 58 Year
  Sex: Female

DRUGS (3)
  1. MUCINEX SINUS-MAX SEVERE CONGESTION RELIEF [Suspect]
     Indication: PRODUCT USED FOR UNKNOWN INDICATION
     Dosage: PATIENT TOOK 1 CAPLET
     Route: 048
     Dates: start: 20130106
  2. MUCINEX SINUS-MAX SEVERE CONGESTION RELIEF [Suspect]
  3. MUCINEX SINUS-MAX SEVERE CONGESTION RELIEF [Suspect]

REACTIONS (2)
  - Asthma [Recovered/Resolved]
  - Dyspnoea [Recovered/Resolved]
